FAERS Safety Report 8707498 (Version 3)
Quarter: 2012Q4

REPORT INFORMATION
  Report Type: 
  Country: US (occurrence: US)
  Receive Date: 20120804
  Receipt Date: 20121018
  Transmission Date: 20130627
  Serious: No
  Sender: FDA-Public Use
  Company Number: US-009507513-1207USA010014

PATIENT
  Sex: Female

DRUGS (4)
  1. PEGINTRON [Suspect]
     Indication: HEPATITIS C
     Dosage: UNK
     Dates: start: 20120619, end: 20120824
  2. REBETOL [Suspect]
     Indication: HEPATITIS C
     Dosage: 600 mg, bid
     Route: 048
     Dates: start: 20120619, end: 20120824
  3. REBETOL [Suspect]
     Dosage: 400 mg, bid
     Route: 048
     Dates: start: 20120619
  4. TELAPREVIR [Concomitant]
     Indication: HEPATITIS C
     Dosage: UNK
     Dates: start: 20120619, end: 20120824

REACTIONS (12)
  - Dyspepsia [Unknown]
  - Gastrooesophageal reflux disease [Unknown]
  - Crying [Unknown]
  - Throat irritation [Unknown]
  - Emotional disorder [Unknown]
  - Dysgeusia [Unknown]
  - Nausea [Unknown]
  - White blood cell count decreased [Unknown]
  - Red blood cell count decreased [Unknown]
  - Dizziness [Unknown]
  - Dyspnoea [Unknown]
  - Fatigue [Unknown]
